FAERS Safety Report 10067418 (Version 2)
Quarter: 2014Q2

REPORT INFORMATION
  Report Type: Spontaneous
  Country: US (occurrence: US)
  Receive Date: 20140409
  Receipt Date: 20140515
  Transmission Date: 20141212
  Serious: Yes (Hospitalization)
  Sender: FDA-Public Use
  Company Number: US-SA-2014SA044210

PATIENT
  Age: 82 Year
  Sex: Female
  Weight: 67 kg

DRUGS (13)
  1. PLAVIX [Suspect]
     Indication: PROPHYLAXIS
     Route: 048
     Dates: start: 20121129, end: 20130202
  2. PLAVIX [Suspect]
     Indication: TRANSIENT ISCHAEMIC ATTACK
     Route: 048
     Dates: start: 20121129, end: 20130202
  3. PLAVIX [Suspect]
     Indication: PROPHYLAXIS
     Route: 048
     Dates: start: 20130219, end: 20130920
  4. PLAVIX [Suspect]
     Indication: TRANSIENT ISCHAEMIC ATTACK
     Route: 048
     Dates: start: 20130219, end: 20130920
  5. BLINDED THERAPY [Suspect]
     Indication: OSTEOARTHRITIS
     Route: 065
     Dates: start: 20110720, end: 20130202
  6. BLINDED THERAPY [Suspect]
     Indication: RHEUMATOID ARTHRITIS
     Route: 065
     Dates: start: 20110720, end: 20130202
  7. NEXIUM [Concomitant]
     Indication: PROPHYLAXIS
     Dates: start: 20110712
  8. HYDROCHLOROTHIAZIDE [Concomitant]
  9. XALANTAN [Concomitant]
     Indication: OPEN ANGLE GLAUCOMA
     Dates: start: 20030102
  10. SIMVASTATIN [Concomitant]
     Indication: HYPERLIPIDAEMIA
     Dates: start: 20080128
  11. CALCIUM [Concomitant]
     Indication: OSTEOPOROSIS
     Dates: start: 200511
  12. HYDROCHLOROTHIAZIDE WITH TRIAMTERENE [Concomitant]
     Indication: HYPERTENSION
     Route: 048
     Dates: start: 20070731
  13. TRAMADOL [Concomitant]
     Indication: OSTEOARTHRITIS
     Route: 048
     Dates: start: 20110811

REACTIONS (3)
  - Gastrointestinal arteriovenous malformation [Recovered/Resolved]
  - Large intestinal ulcer [Recovered/Resolved]
  - Gastrointestinal haemorrhage [Recovered/Resolved]
